FAERS Safety Report 4801130-2 (Version None)
Quarter: 2005Q4

REPORT INFORMATION
  Report Type: 
  Country: None (occurrence: None)
  Receive Date: 20051017
  Receipt Date: 20050831
  Transmission Date: 20060501
  Serious: Yes (Hospitalization)
  Sender: FDA-Public Use
  Company Number: 2005AP04703

PATIENT
  Age: 24131 Day
  Sex: Female

DRUGS (11)
  1. OMEPRAL [Suspect]
     Indication: REFLUX OESOPHAGITIS
     Route: 048
     Dates: start: 20050528, end: 20050611
  2. OMEPRAL [Suspect]
     Route: 048
     Dates: start: 20050702, end: 20050814
  3. ADALAT [Concomitant]
     Indication: HYPERTENSION
     Route: 048
     Dates: start: 20030101
  4. MICARDIS [Concomitant]
     Route: 048
     Dates: start: 20030101, end: 20050722
  5. MICARDIS [Concomitant]
     Route: 048
     Dates: start: 20050814
  6. ALCENOL [Concomitant]
     Route: 048
     Dates: start: 20030101
  7. TARIVID [Concomitant]
     Indication: CYSTITIS
     Route: 048
     Dates: start: 20050722, end: 20050725
  8. ALLOID G [Concomitant]
     Route: 048
     Dates: start: 20050722, end: 20050804
  9. DEPAS [Concomitant]
     Indication: INSOMNIA
     Route: 048
     Dates: start: 20050725
  10. HALCION [Concomitant]
     Indication: INSOMNIA
     Route: 048
     Dates: start: 20050725
  11. MAALOX FAST BLOCKER [Concomitant]
     Route: 048
     Dates: start: 20050702

REACTIONS (6)
  - CYSTITIS [None]
  - HAEMORRHAGE SUBCUTANEOUS [None]
  - PURPURA [None]
  - TREATMENT NONCOMPLIANCE [None]
  - TREMOR [None]
  - VISION BLURRED [None]
